FAERS Safety Report 5632818-1 (Version None)
Quarter: 2008Q1

REPORT INFORMATION
  Report Type: 
  Country: None (occurrence: None)
  Receive Date: 20080221
  Receipt Date: 20070508
  Transmission Date: 20080703
  Serious: No
  Sender: FDA-Public Use
  Company Number: A0650663A

PATIENT
  Sex: Male

DRUGS (4)
  1. ALKERAN [Suspect]
     Indication: MULTIPLE MYELOMA
     Dosage: 25MG PER DAY
     Route: 065
     Dates: start: 20070427
  2. REVLIMID [Suspect]
     Indication: MULTIPLE MYELOMA
     Dosage: 10MG PER DAY
     Route: 065
     Dates: start: 20070427
  3. PREDNISONE TAB [Suspect]
     Indication: MULTIPLE MYELOMA
     Dosage: 100MG PER DAY
     Route: 065
     Dates: start: 20070427
  4. ISOSORBIDE DINITRATE [Concomitant]

REACTIONS (3)
  - HEART RATE IRREGULAR [None]
  - PAIN [None]
  - PALPITATIONS [None]
